FAERS Safety Report 8976785 (Version 2)
Quarter: 2012Q4

REPORT INFORMATION
  Report Type: 
  Country: US (occurrence: US)
  Receive Date: 20121220
  Receipt Date: 20121221
  Transmission Date: 20130627
  Serious: No
  Sender: FDA-Public Use
  Company Number: US-TEVA-373306USA

PATIENT
  Sex: Male
  Weight: 110.32 kg

DRUGS (11)
  1. NUVIGIL [Suspect]
     Indication: SLEEP APNOEA SYNDROME
     Route: 048
     Dates: start: 201208, end: 20121127
  2. ACETAMINOPHEN [Concomitant]
     Indication: BACK PAIN
     Dosage: PRN
     Route: 048
  3. CODEINE [Concomitant]
     Indication: BACK PAIN
     Dosage: PRN
     Route: 048
  4. AMLODIPINE [Concomitant]
     Indication: HYPERTENSION
     Dosage: QD
     Route: 048
  5. ANDRODERM [Concomitant]
     Dosage: QD
     Route: 061
  6. HCTZ [Concomitant]
     Indication: HYPERTENSION
     Dosage: QD
     Route: 048
  7. TRIAMTERENE [Concomitant]
     Indication: HYPERTENSION
     Dosage: QD
     Route: 048
  8. IBUPROFEN [Concomitant]
     Dosage: BID
     Route: 048
  9. LOSARTAN [Concomitant]
     Indication: HYPERTENSION
     Dosage: QD
     Route: 048
  10. LOVASTATIN [Concomitant]
     Indication: BLOOD CHOLESTEROL
     Dosage: QD
     Route: 048
  11. PANTOPRAZOLE [Concomitant]
     Indication: GASTROOESOPHAGEAL REFLUX DISEASE
     Dosage: QD
     Route: 048

REACTIONS (8)
  - Dry mouth [Not Recovered/Not Resolved]
  - Oral disorder [Not Recovered/Not Resolved]
  - Glossodynia [Not Recovered/Not Resolved]
  - Pain [Not Recovered/Not Resolved]
  - Lip pain [Not Recovered/Not Resolved]
  - Drug ineffective [Not Recovered/Not Resolved]
  - Stomatitis [Unknown]
  - Somnolence [Unknown]
